FAERS Safety Report 9581813 (Version 1)
Quarter: 2013Q4

REPORT INFORMATION
  Report Type: Spontaneous
  Country: NO (occurrence: NO)
  Receive Date: 20131002
  Receipt Date: 20131002
  Transmission Date: 20140711
  Serious: Yes (Other)
  Sender: FDA-Public Use
  Company Number: NO-B.I. PHARMACEUTICALS,INC./RIDGEFIELD-2013-SW-00470NO

PATIENT
  Age: 66 Year
  Sex: Female

DRUGS (4)
  1. PRADAXA [Suspect]
     Indication: ATRIAL FIBRILLATION
     Dosage: 300 MG
     Dates: start: 201206
  2. LEVAXIN [Concomitant]
  3. SIMVASTATIN [Concomitant]
  4. SELO-ZOK [Concomitant]

REACTIONS (8)
  - Cerebral infarction [Unknown]
  - Malaise [Unknown]
  - Dizziness [Unknown]
  - Nausea [Unknown]
  - Diplopia [Unknown]
  - Headache [Unknown]
  - Atrial fibrillation [Unknown]
  - Visual impairment [Unknown]
